FAERS Safety Report 5563397-5 (Version None)
Quarter: 2007Q4

REPORT INFORMATION
  Report Type: 
  Country: None (occurrence: None)
  Receive Date: 20071217
  Receipt Date: 20070523
  Transmission Date: 20080405
  Serious: No
  Sender: FDA-Public Use
  Company Number: US-ASTRAZENECA-2005UW15825

PATIENT
  Age: 84 Year
  Sex: Male
  Weight: 75.5 kg

DRUGS (8)
  1. CRESTOR [Suspect]
     Route: 048
     Dates: start: 20050901
  2. CRESTOR [Suspect]
     Route: 048
  3. TOPROL-XL [Concomitant]
  4. BABY ACETYLSALICYLIC ACID [Concomitant]
  5. ZESTRIL [Concomitant]
  6. CIPROFLOXACIN HCL [Concomitant]
  7. SYNTHROID [Concomitant]
  8. EYE DROPS [Concomitant]
     Indication: CATARACT

REACTIONS (6)
  - ARTHRALGIA [None]
  - FATIGUE [None]
  - HYPERHIDROSIS [None]
  - LARYNGITIS [None]
  - NAUSEA [None]
  - PYREXIA [None]
